FAERS Safety Report 23576430 (Version 1)
Quarter: 2024Q1

REPORT INFORMATION
  Report Type: Spontaneous
  Country: US (occurrence: US)
  Receive Date: 20240228
  Receipt Date: 20240228
  Transmission Date: 20240409
  Serious: No
  Sender: FDA-Public Use
  Company Number: US-PFIZER INC-202400050957

PATIENT
  Age: 82 Year
  Sex: Male

DRUGS (1)
  1. CHANTIX [Suspect]
     Active Substance: VARENICLINE TARTRATE
     Indication: Weight decreased
     Dosage: UNK

REACTIONS (4)
  - Decreased appetite [Unknown]
  - Feeling abnormal [Unknown]
  - Intentional product use issue [Unknown]
  - Expired product administered [Unknown]
